FAERS Safety Report 5426033-4 (Version None)
Quarter: 2007Q3

REPORT INFORMATION
  Report Type: 
  Country: None (occurrence: None)
  Receive Date: 20070824
  Receipt Date: 20070824
  Transmission Date: 20080115
  Serious: Yes (Life-Threatening, Hospitalization, Disabling, Congenital Anomaly, Other)
  Sender: FDA-Public Use
  Company Number: None

PATIENT
  Age: 28 Year
  Sex: Male
  Weight: 63.5036 kg

DRUGS (2)
  1. THORAZINE [Suspect]
     Indication: AGGRESSION
     Dosage: 50 MG IM
     Route: 030
     Dates: start: 19951212, end: 19951218
  2. THORAZINE [Suspect]
     Indication: AGITATION
     Dosage: 50 MG IM
     Route: 030
     Dates: start: 19951212, end: 19951218

REACTIONS (2)
  - LABORATORY TEST ABNORMAL [None]
  - NEUROLEPTIC MALIGNANT SYNDROME [None]
